FAERS Safety Report 8953301 (Version 2)
Quarter: 2013Q1

REPORT INFORMATION
  Report Type: Spontaneous
  Country: US (occurrence: US)
  Receive Date: 20121206
  Receipt Date: 20130117
  Transmission Date: 20140127
  Serious: Yes (Other)
  Sender: FDA-Public Use
  Company Number: US-BAYER-2012-126442

PATIENT
  Age: 23 Year
  Sex: Female
  Weight: 59.86 kg

DRUGS (1)
  1. MIRENA [Suspect]
     Indication: CONTRACEPTION
     Dosage: 20 MCG/24HR, CONT
     Route: 015
     Dates: start: 20120118, end: 20121015

REACTIONS (5)
  - Urinary tract infection [Recovered/Resolved]
  - Vaginitis bacterial [Recovered/Resolved]
  - Vulvovaginal mycotic infection [Recovered/Resolved]
  - Device issue [Recovered/Resolved]
  - Vaginal discharge [Recovered/Resolved]
